FAERS Safety Report 4294800-9 (Version None)
Quarter: 2004Q1

REPORT INFORMATION
  Report Type: 
  Country: None (occurrence: None)
  Receive Date: 20040216
  Receipt Date: 20021213
  Transmission Date: 20041129
  Serious: No
  Sender: FDA-Public Use
  Company Number: US-GLAXOSMITHKLINE-A0389215A

PATIENT
  Age: 39 Year
  Sex: Female

DRUGS (10)
  1. LAMICTAL [Suspect]
     Indication: EPILEPSY
     Dosage: 600MG PER DAY
     Route: 048
     Dates: start: 20020901
  2. OXYCONTIN [Concomitant]
  3. HYDROCODONE [Concomitant]
  4. SOMA [Concomitant]
  5. DURAGESIC [Concomitant]
  6. MORPHINE [Concomitant]
  7. ULTRAM [Concomitant]
  8. KLONOPIN [Concomitant]
  9. SEROQUEL [Concomitant]
  10. METHADONE HCL [Concomitant]

REACTIONS (7)
  - ARTHRALGIA [None]
  - DECREASED APPETITE [None]
  - HEADACHE [None]
  - INSOMNIA [None]
  - NAUSEA [None]
  - VERTIGO [None]
  - VOMITING [None]
